FAERS Safety Report 5800730-0 (Version None)
Quarter: 2008Q3

REPORT INFORMATION
  Report Type: 
  Country: None (occurrence: None)
  Receive Date: 20080703
  Receipt Date: 20080602
  Transmission Date: 20090109
  Serious: Yes (Hospitalization)
  Sender: FDA-Public Use
  Company Number: US-BRISTOL-MYERS SQUIBB COMPANY-14210025

PATIENT
  Age: 60 Year
  Sex: Female

DRUGS (10)
  1. ORENCIA [Suspect]
     Indication: RHEUMATOID ARTHRITIS
     Dosage: MONTHLY INFUSIONS.
     Route: 042
     Dates: start: 20061201
  2. PREDNISONE 50MG TAB [Concomitant]
  3. METHOTREXATE [Concomitant]
  4. DURAGESIC-100 [Concomitant]
  5. CLONAZEPAM [Concomitant]
     Dosage: 1 DOSAGE FORM = 0.5MG IN AM + 1MG IN PM
  6. FOLIC ACID [Concomitant]
  7. TRAZODONE HCL [Concomitant]
  8. PRILOSEC [Concomitant]
  9. VITAMIN D [Concomitant]
  10. RANITIDINE HCL [Concomitant]
     Route: 048

REACTIONS (2)
  - HYPOTENSION [None]
  - PYREXIA [None]
